FAERS Safety Report 15231205 (Version 1)
Quarter: 2018Q3

REPORT INFORMATION
  Report Type: Spontaneous
  Country: DE (occurrence: DE)
  Receive Date: 20180802
  Receipt Date: 20180802
  Transmission Date: 20181010
  Serious: Yes (Death)
  Sender: FDA-Public Use
  Company Number: PHHY2018DE057622

PATIENT
  Age: 28 Year
  Sex: Female

DRUGS (3)
  1. PREDNISONE. [Suspect]
     Active Substance: PREDNISONE
     Indication: ACUTE LYMPHOCYTIC LEUKAEMIA
     Dosage: 1770 MG/M2, CYCLIC (4?WEEK INDUCTION COURSE)
     Route: 065
     Dates: start: 1990
  2. L?ASPARAGINASE [Suspect]
     Active Substance: ASPARAGINASE
     Indication: ACUTE LYMPHOCYTIC LEUKAEMIA
     Dosage: 70 000 UNITS/M2 (4?WEEK INDUCTION COURSE)
     Route: 065
  3. DAUNORUBICIN HYDROCHLORIDE. [Suspect]
     Active Substance: DAUNORUBICIN HYDROCHLORIDE
     Indication: ACUTE LYMPHOCYTIC LEUKAEMIA
     Dosage: 180 MG/M2, CYCLIC (4?WEEK INDUCTION COURSE)
     Route: 065

REACTIONS (3)
  - Pulmonary haemorrhage [Fatal]
  - Stenotrophomonas infection [Fatal]
  - Pneumonia [Fatal]
